FAERS Safety Report 10086521 (Version 2)
Quarter: 2014Q2

REPORT INFORMATION
  Report Type: Spontaneous
  Country: US (occurrence: US)
  Receive Date: 20140418
  Receipt Date: 20140418
  Transmission Date: 20141212
  Serious: No
  Sender: FDA-Public Use
  Company Number: US-PFIZER INC-2013248902

PATIENT
  Age: 44 Year
  Sex: Female
  Weight: 97.51 kg

DRUGS (6)
  1. DILANTIN [Suspect]
     Indication: GENERALISED TONIC-CLONIC SEIZURE
     Dosage: 500 MG (100 MG X 5 AT BEDTIME), DAILY
     Dates: start: 20030130
  2. ALEVE [Concomitant]
     Indication: OSTEOARTHRITIS
     Dosage: UNK
  3. HYDROCHLOROTHIAZIDE [Concomitant]
  4. AMBIEN [Concomitant]
  5. GLUCOSAMINE [Concomitant]
  6. ZANTAC [Concomitant]

REACTIONS (1)
  - Fatigue [Unknown]
